FAERS Safety Report 9748437 (Version 1)
Quarter: 2013Q4

REPORT INFORMATION
  Report Type: Report from Study
  Country: US (occurrence: US)
  Receive Date: 20131212
  Receipt Date: 20131212
  Transmission Date: 20140711
  Serious: Yes (Other)
  Sender: FDA-Public Use
  Company Number: US-ROCHE-1317081

PATIENT
  Sex: Male

DRUGS (6)
  1. XOLAIR [Suspect]
     Indication: ASTHMA
     Dosage: EVERY TWO WEEKS, STARTED 1 YR AGO
     Route: 065
  2. SYMBICORT [Concomitant]
     Dosage: 2 PUFFS TWICE A DAY
     Route: 065
  3. ALBUTEROL [Concomitant]
     Dosage: 2 PUFFS EVERY 4-6 HOURS
     Route: 065
  4. FLONASE [Concomitant]
     Dosage: 1-2 SPRAYS ONCE A DAY
     Route: 065
  5. ZYRTEC [Concomitant]
     Route: 048
  6. SINGULAIR [Concomitant]
     Dosage: CHEWABLE;  1 IN EVENING DAILY
     Route: 048

REACTIONS (4)
  - Chest discomfort [Unknown]
  - Wheezing [Unknown]
  - Eczema [Unknown]
  - Dry skin [Unknown]
